FAERS Safety Report 15225408 (Version 1)
Quarter: 2018Q3

REPORT INFORMATION
  Report Type: Spontaneous
  Country: PT (occurrence: PT)
  Receive Date: 20180801
  Receipt Date: 20180801
  Transmission Date: 20181010
  Serious: Yes (Other)
  Sender: FDA-Public Use
  Company Number: PT-AUROBINDO-AUR-APL-2018-036616

PATIENT
  Age: 41 Year
  Weight: 71 kg

DRUGS (3)
  1. IBUPROFEN. [Suspect]
     Active Substance: IBUPROFEN
     Indication: MENORRHAGIA
     Dosage: 600 MILLIGRAM, 1 CP EVERY 12 HOURS, 5 DAYS
     Route: 048
     Dates: start: 20180606, end: 20180611
  2. IMPLANON [Concomitant]
     Active Substance: ETONOGESTREL
     Indication: CONTRACEPTION
     Dosage: 1 DOSAGE FORM
     Route: 058
     Dates: start: 20161027
  3. AMOXICILLIN+CLAVULANIC ACID [Interacting]
     Active Substance: AMOXICILLIN\CLAVULANIC ACID
     Indication: UPPER RESPIRATORY TRACT INFECTION
     Dosage: 1 DOSAGE FORM, 875 MG + 125 MG EVERY 12 HOURS, 8 DAYS
     Route: 048
     Dates: start: 20180606, end: 20180614

REACTIONS (2)
  - Pruritus generalised [Recovering/Resolving]
  - Rash maculo-papular [Recovering/Resolving]

NARRATIVE: CASE EVENT DATE: 20180607
